FAERS Safety Report 9120234 (Version 4)
Quarter: 2013Q2

REPORT INFORMATION
  Report Type: Spontaneous
  Country: IT (occurrence: IT)
  Receive Date: 20130226
  Receipt Date: 20130618
  Transmission Date: 20140414
  Serious: Yes (Other)
  Sender: FDA-Public Use
  Company Number: IT-JNJFOC-20130208372

PATIENT
  Age: 38 Year
  Sex: Female

DRUGS (2)
  1. HALDOL [Suspect]
     Indication: ANXIETY
     Route: 048
     Dates: start: 20130213, end: 20130213
  2. HALDOL [Suspect]
     Indication: ANXIETY
     Route: 048
     Dates: start: 20130214, end: 20130214

REACTIONS (3)
  - Self injurious behaviour [Recovered/Resolved]
  - Intentional overdose [Recovered/Resolved]
  - Psychomotor hyperactivity [Recovered/Resolved]
